FAERS Safety Report 19945877 (Version 1)
Quarter: 2021Q4

REPORT INFORMATION
  Report Type: Spontaneous
  Country: AU (occurrence: AU)
  Receive Date: 20211012
  Receipt Date: 20211012
  Transmission Date: 20220303
  Serious: Yes (Hospitalization)
  Sender: FDA-Public Use
  Company Number: AU-LUPIN PHARMACEUTICALS INC.-2021-19174

PATIENT
  Age: 21 Year
  Sex: Male

DRUGS (20)
  1. OSELTAMIVIR [Suspect]
     Active Substance: OSELTAMIVIR
     Indication: Influenza
     Dosage: 75 MILLIGRAM, BID
     Route: 048
  2. TEDIZOLID [Concomitant]
     Active Substance: TEDIZOLID
     Indication: Bronchopulmonary aspergillosis
     Dosage: UNK
     Route: 065
  3. TEDIZOLID [Concomitant]
     Active Substance: TEDIZOLID
     Indication: Mycobacterium abscessus infection
  4. TEDIZOLID [Concomitant]
     Active Substance: TEDIZOLID
     Indication: Pneumonia
  5. CLOFAZIMINE [Concomitant]
     Active Substance: CLOFAZIMINE
     Indication: Bronchopulmonary aspergillosis
     Dosage: UNK
     Route: 065
  6. CLOFAZIMINE [Concomitant]
     Active Substance: CLOFAZIMINE
     Indication: Mycobacterium abscessus infection
  7. CLOFAZIMINE [Concomitant]
     Active Substance: CLOFAZIMINE
     Indication: Pneumonia
  8. TIGECYCLINE [Concomitant]
     Active Substance: TIGECYCLINE
     Indication: Bronchopulmonary aspergillosis
     Dosage: UNK
     Route: 065
  9. TIGECYCLINE [Concomitant]
     Active Substance: TIGECYCLINE
     Indication: Mycobacterium abscessus infection
  10. TIGECYCLINE [Concomitant]
     Active Substance: TIGECYCLINE
     Indication: Pneumonia
  11. VORICONAZOLE [Concomitant]
     Active Substance: VORICONAZOLE
     Indication: Bronchopulmonary aspergillosis
     Dosage: UNK
     Route: 065
  12. VORICONAZOLE [Concomitant]
     Active Substance: VORICONAZOLE
     Indication: Mycobacterium abscessus infection
  13. VORICONAZOLE [Concomitant]
     Active Substance: VORICONAZOLE
     Indication: Pneumonia
  14. VANCOMYCIN [Concomitant]
     Active Substance: VANCOMYCIN
     Indication: Staphylococcal infection
     Dosage: UNK
     Route: 065
  15. VANCOMYCIN [Concomitant]
     Active Substance: VANCOMYCIN
     Indication: Pseudomonas infection
  16. POLYMYXIN B [Concomitant]
     Active Substance: POLYMYXIN B
     Indication: Staphylococcal infection
     Dosage: UNK
     Route: 065
  17. POLYMYXIN B [Concomitant]
     Active Substance: POLYMYXIN B
     Indication: Pseudomonas infection
  18. MEROPENEM\VABORBACTAM [Concomitant]
     Active Substance: MEROPENEM\VABORBACTAM
     Indication: Bronchopulmonary aspergillosis
     Dosage: UNK
     Route: 065
  19. MEROPENEM\VABORBACTAM [Concomitant]
     Active Substance: MEROPENEM\VABORBACTAM
     Indication: Mycobacterium abscessus infection
  20. MEROPENEM\VABORBACTAM [Concomitant]
     Active Substance: MEROPENEM\VABORBACTAM
     Indication: Pneumonia

REACTIONS (1)
  - Drug resistance [Unknown]
